FAERS Safety Report 10833576 (Version 1)
Quarter: 2015Q1

REPORT INFORMATION
  Report Type: Spontaneous
  Country: PT (occurrence: PT)
  Receive Date: 20150219
  Receipt Date: 20150219
  Transmission Date: 20150721
  Serious: Yes (Life-Threatening)
  Sender: FDA-Public Use
  Company Number: PT-JNJFOC-20150208535

PATIENT
  Age: 28 Year
  Sex: Male

DRUGS (2)
  1. AZATIOPRINA [Concomitant]
     Active Substance: AZATHIOPRINE
     Route: 048
     Dates: start: 20130621
  2. REMICADE [Suspect]
     Active Substance: INFLIXIMAB
     Indication: CROHN^S DISEASE
     Route: 042
     Dates: start: 20130805, end: 20150106

REACTIONS (2)
  - Varicella [Recovered/Resolved]
  - Respiratory failure [Recovered/Resolved]

NARRATIVE: CASE EVENT DATE: 20150106
